FAERS Safety Report 4311817-6 (Version None)
Quarter: 2004Q1

REPORT INFORMATION
  Report Type: 
  Country: None (occurrence: None)
  Receive Date: 20040304
  Receipt Date: 20031231
  Transmission Date: 20041129
  Serious: Yes (Hospitalization, Other)
  Sender: FDA-Public Use
  Company Number: WAES 0401USA00021

PATIENT
  Age: 79 Year
  Sex: Female
  Weight: 76 kg

DRUGS (1)
  1. INVANZ [Suspect]
     Indication: STREPTOCOCCAL INFECTION
     Route: 042
     Dates: start: 20031216, end: 20040126

REACTIONS (1)
  - TOOTH DISCOLOURATION [None]
